FAERS Safety Report 23718965 (Version 3)
Quarter: 2025Q1

REPORT INFORMATION
  Report Type: Spontaneous
  Country: US (occurrence: US)
  Receive Date: 20240408
  Receipt Date: 20250312
  Transmission Date: 20250408
  Serious: Yes (Other)
  Sender: PFIZER
  Company Number: US-PFIZER INC-PV202400044761

PATIENT
  Age: 77 Year
  Sex: Female

DRUGS (1)
  1. XELJANZ [Suspect]
     Active Substance: TOFACITINIB CITRATE
     Route: 048

REACTIONS (3)
  - Visual impairment [Unknown]
  - Frustration tolerance decreased [Unknown]
  - Head discomfort [Unknown]
